FAERS Safety Report 7263601-1 (Version None)
Quarter: 2011Q1

REPORT INFORMATION
  Report Type: 
  Country: None (occurrence: None)
  Receive Date: 20110130
  Receipt Date: 20101108
  Transmission Date: 20110831
  Serious: No
  Sender: FDA-Public Use
  Company Number: US-ABBOTT-10P-163-0683967-00

PATIENT
  Age: 40 Year
  Sex: Female

DRUGS (8)
  1. BUTABATOL WITH TYLENOL [Concomitant]
     Indication: MIGRAINE
  2. ALPRAZOLAM [Concomitant]
     Indication: ANXIETY
  3. PRAMIPEXOLE [Concomitant]
     Indication: NEUROPATHY PERIPHERAL
     Dosage: AT NIGHT
  4. PROMETHAZINE [Concomitant]
     Indication: NAUSEA
  5. METHOCARBAMOL [Concomitant]
     Indication: MUSCLE SPASMS
     Dosage: TAKES 2 TABS AT ONSET OF MUSCLE SPASMS; CAN LEAD TO MIGRAINE HEADACHE
  6. HUMIRA [Suspect]
     Indication: RHEUMATOID ARTHRITIS
     Dates: start: 20101006
  7. OXYCODONE [Concomitant]
     Indication: BACK PAIN
     Dosage: 5/325 MG
  8. ZOFRAN [Concomitant]
     Indication: VOMITING
     Dosage: DISSOLVABLE TABLET

REACTIONS (4)
  - DECREASED APPETITE [None]
  - NAUSEA [None]
  - HEADACHE [None]
  - HICCUPS [None]
